FAERS Safety Report 6683116-9 (Version None)
Quarter: 2010Q2

REPORT INFORMATION
  Report Type: 
  Country: None (occurrence: None)
  Receive Date: 20100415
  Receipt Date: 20100412
  Transmission Date: 20101027
  Serious: Yes (Death, Hospitalization, Other)
  Sender: FDA-Public Use
  Company Number: AU-MERCK-1003USA02018

PATIENT
  Age: 62 Year
  Sex: Female

DRUGS (4)
  1. VYTORIN [Suspect]
     Route: 048
  2. METFORMIN [Concomitant]
     Indication: TYPE 2 DIABETES MELLITUS
     Route: 065
  3. GLICLAZIDE [Concomitant]
     Indication: TYPE 2 DIABETES MELLITUS
     Route: 065
  4. ATORVASTATIN [Suspect]
     Route: 065

REACTIONS (5)
  - BLOOD CREATININE INCREASED [None]
  - MYOSITIS [None]
  - QUADRIPARESIS [None]
  - RESPIRATORY FAILURE [None]
  - VITAMIN D DEFICIENCY [None]
